FAERS Safety Report 5298884-0 (Version None)
Quarter: 2007Q2

REPORT INFORMATION
  Report Type: 
  Country: None (occurrence: None)
  Receive Date: 20070417
  Receipt Date: 20070403
  Transmission Date: 20071010
  Serious: Yes (Death, Hospitalization)
  Sender: FDA-Public Use
  Company Number: HQWYE330105SEP06

PATIENT
  Sex: Female
  Weight: 57 kg

DRUGS (14)
  1. ENBREL [Suspect]
     Indication: RHEUMATOID ARTHRITIS
     Route: 058
     Dates: start: 20060703, end: 20060727
  2. PREDNISOLONE [Suspect]
     Indication: RHEUMATOID ARTHRITIS
     Route: 048
     Dates: start: 20060511, end: 20060801
  3. MOBIC [Concomitant]
     Indication: RHEUMATOID ARTHRITIS
     Route: 048
     Dates: start: 20060511, end: 20060801
  4. VASOLAN [Concomitant]
     Indication: ANGINA PECTORIS
     Route: 048
     Dates: start: 20060511, end: 20060801
  5. FLUTIDE DISKUS [Concomitant]
     Indication: ASTHMA
     Route: 055
     Dates: start: 20060511, end: 20060801
  6. URALYT [Concomitant]
     Dosage: UNSPECIFIED
     Route: 048
  7. LASIX [Concomitant]
     Indication: ANGINA PECTORIS
     Route: 048
     Dates: start: 20060511, end: 20060801
  8. PRANLUKAST [Concomitant]
     Indication: ASTHMA
     Route: 048
     Dates: start: 20060511, end: 20060801
  9. SPIRIVA [Concomitant]
     Dosage: UNSPECIFIED
     Route: 048
  10. ALDACTONE [Concomitant]
     Dosage: UNSPECIFIED
     Route: 048
  11. URINORM [Concomitant]
     Dosage: UNSPECIFIED
     Route: 048
  12. METHOTREXATE [Concomitant]
     Dosage: 2.5 MG, TAB
     Route: 048
     Dates: start: 20060513, end: 20060609
  13. METHOTREXATE [Concomitant]
     Dosage: 2.5 MG, TAB
     Route: 048
     Dates: start: 20060610, end: 20060730
  14. OMEPRAL [Concomitant]
     Indication: GASTROOESOPHAGEAL REFLUX DISEASE
     Route: 048
     Dates: start: 20060511, end: 20060801

REACTIONS (1)
  - PNEUMOCYSTIS JIROVECI PNEUMONIA [None]
